FAERS Safety Report 23622347 (Version 1)
Quarter: 2024Q1

REPORT INFORMATION
  Report Type: Spontaneous
  Country: CN (occurrence: CN)
  Receive Date: 20240312
  Receipt Date: 20240312
  Transmission Date: 20240410
  Serious: Yes (Hospitalization, Other)
  Sender: FDA-Public Use
  Company Number: CN-BAYER-2024A036788

PATIENT
  Age: 71 Year
  Sex: Male
  Weight: 65 kg

DRUGS (1)
  1. GLUCOBAY [Suspect]
     Active Substance: ACARBOSE
     Indication: Type 2 diabetes mellitus
     Dosage: 50 MG, TID
     Route: 048
     Dates: start: 20210126, end: 20240306

REACTIONS (7)
  - Abdominal distension [Recovered/Resolved]
  - Dizziness [Recovering/Resolving]
  - Gait disturbance [None]
  - Cerebellar infarction [None]
  - Respiratory rate increased [None]
  - Depressed mood [None]
  - Flatulence [Recovering/Resolving]

NARRATIVE: CASE EVENT DATE: 20240201
